FAERS Safety Report 4971720-5 (Version None)
Quarter: 2006Q2

REPORT INFORMATION
  Report Type: 
  Country: None (occurrence: None)
  Receive Date: 20060413
  Receipt Date: 20060329
  Transmission Date: 20061013
  Serious: Yes (Disabling)
  Sender: FDA-Public Use
  Company Number: PHMT2006CA00966

PATIENT
  Age: 47 Year
  Sex: Male
  Weight: 81.632 kg

DRUGS (1)
  1. DIOVAN HCT [Suspect]
     Indication: HYPERTENSION
     Dosage: 160/12.5 MG
     Route: 048
     Dates: start: 20060110, end: 20060329

REACTIONS (2)
  - COLITIS ULCERATIVE [None]
  - DIARRHOEA [None]
